FAERS Safety Report 5494218-7 (Version None)
Quarter: 2007Q4

REPORT INFORMATION
  Report Type: 
  Country: None (occurrence: None)
  Receive Date: 20071024
  Receipt Date: 20071019
  Transmission Date: 20080405
  Serious: Yes (Other)
  Sender: FDA-Public Use
  Company Number: PHRM2007FR02180

PATIENT
  Age: 26 Year
  Sex: Male
  Weight: 120 kg

DRUGS (1)
  1. LAMISIL [Suspect]
     Indication: NAIL TINEA
     Dosage: 250 MG, QD
     Route: 048
     Dates: start: 20070710

REACTIONS (2)
  - FACIAL PALSY [None]
  - HEMIPARESIS [None]
